FAERS Safety Report 6893080-5 (Version None)
Quarter: 2010Q3

REPORT INFORMATION
  Report Type: 
  Country: None (occurrence: None)
  Receive Date: 20100731
  Receipt Date: 20090402
  Transmission Date: 20110219
  Serious: No
  Sender: FDA-Public Use
  Company Number: US-PFIZER INC-2009195309

PATIENT
  Sex: Male

DRUGS (5)
  1. CAVERJECT [Suspect]
     Indication: ERECTILE DYSFUNCTION
  2. VIAGRA [Suspect]
     Indication: ERECTILE DYSFUNCTION
     Dosage: UNK
  3. METFORMIN [Concomitant]
     Dosage: UNK
  4. ACTOS [Concomitant]
     Dosage: UNK
  5. INSULIN [Concomitant]
     Dosage: UNK

REACTIONS (1)
  - DRUG INEFFECTIVE [None]
